FAERS Safety Report 5630756-1 (Version None)
Quarter: 2008Q1

REPORT INFORMATION
  Report Type: 
  Country: None (occurrence: None)
  Receive Date: 20080219
  Receipt Date: 20080215
  Transmission Date: 20080703
  Serious: Yes (Other)
  Sender: FDA-Public Use
  Company Number: US-ASTRAZENECA-2008UW03145

PATIENT
  Age: 75 Year
  Sex: Female

DRUGS (4)
  1. FASLODEX [Suspect]
     Route: 030
     Dates: start: 20080101
  2. HERCEPTIN [Suspect]
  3. SYNTHROID [Concomitant]
  4. LOTENSIN HCT [Concomitant]

REACTIONS (2)
  - FALL [None]
  - MUSCULAR WEAKNESS [None]
